FAERS Safety Report 8054205-1 (Version None)
Quarter: 2012Q1

REPORT INFORMATION
  Report Type: 
  Country: None (occurrence: None)
  Receive Date: 20120118
  Receipt Date: 20120116
  Transmission Date: 20120608
  Serious: Yes (Hospitalization, Other)
  Sender: FDA-Public Use
  Company Number: SE-ROCHE-1020213

PATIENT
  Age: 12 Year
  Sex: Female

DRUGS (2)
  1. NAPROXEN [Concomitant]
     Indication: PRODUCT USED FOR UNKNOWN INDICATION
     Dosage: UNKNOWN
     Route: 065
  2. ACTEMRA [Suspect]
     Indication: JUVENILE ARTHRITIS
     Dosage: 20 MG/ML
     Route: 042
     Dates: start: 20111005, end: 20111110

REACTIONS (5)
  - COUGH [None]
  - FATIGUE [None]
  - NAUSEA [None]
  - DIZZINESS [None]
  - CHEST PAIN [None]
